FAERS Safety Report 10142879 (Version 1)
Quarter: 2014Q2

REPORT INFORMATION
  Report Type: Spontaneous
  Country: US (occurrence: US)
  Receive Date: 20140430
  Receipt Date: 20140430
  Transmission Date: 20141212
  Serious: Yes (Other)
  Sender: FDA-Public Use
  Company Number: US-ELI_LILLY_AND_COMPANY-US201404006927

PATIENT
  Sex: Male

DRUGS (3)
  1. HUMALOG LISPRO [Suspect]
     Indication: TYPE 2 DIABETES MELLITUS
     Dosage: UNK
     Route: 065
     Dates: start: 2008
  2. LANTUS [Concomitant]
     Dosage: 30 U, UNKNOWN
  3. LISINOPRIL [Concomitant]

REACTIONS (5)
  - Peripheral arterial occlusive disease [Unknown]
  - Emphysema [Unknown]
  - Heart rate increased [Unknown]
  - Blood glucose increased [Unknown]
  - Blood glucose decreased [Unknown]
